FAERS Safety Report 7716498-7 (Version None)
Quarter: 2011Q3

REPORT INFORMATION
  Report Type: 
  Country: None (occurrence: None)
  Receive Date: 20110829
  Receipt Date: 20110818
  Transmission Date: 20111222
  Serious: Yes (Disabling, Other)
  Sender: FDA-Public Use
  Company Number: US-BAYER-2011-021712

PATIENT
  Age: 45 Year
  Sex: Female
  Weight: 53.515 kg

DRUGS (1)
  1. YAZ [Suspect]
     Indication: HORMONE THERAPY
     Dosage: UNK
     Route: 048
     Dates: start: 20071001, end: 20080301

REACTIONS (8)
  - PULMONARY EMBOLISM [None]
  - FEAR [None]
  - VISION BLURRED [None]
  - HEADACHE [None]
  - PAIN [None]
  - BLINDNESS UNILATERAL [None]
  - RETINAL VEIN OCCLUSION [None]
  - RETINAL VASCULAR THROMBOSIS [None]
